FAERS Safety Report 5670792-2 (Version None)
Quarter: 2008Q1

REPORT INFORMATION
  Report Type: 
  Country: None (occurrence: None)
  Receive Date: 20080318
  Receipt Date: 20080310
  Transmission Date: 20080703
  Serious: Yes (Hospitalization)
  Sender: FDA-Public Use
  Company Number: US-JNJFOC-20080302913

PATIENT
  Sex: Female
  Weight: 70.31 kg

DRUGS (10)
  1. DURAGESIC-100 [Suspect]
     Indication: PAIN
     Route: 062
  2. PROZAC [Concomitant]
     Indication: DEPRESSION
     Route: 048
  3. LUMIGAN [Concomitant]
     Route: 031
  4. URISPAS [Concomitant]
     Indication: BLADDER DISORDER
     Route: 048
  5. XANAX [Concomitant]
     Indication: ANXIETY
     Route: 048
  6. AXID [Concomitant]
     Indication: GASTRIC DISORDER
     Route: 048
  7. AMBIEN [Concomitant]
     Indication: SLEEP DISORDER
     Route: 048
  8. CYMBALTA [Concomitant]
     Indication: DEPRESSION
     Route: 048
  9. QVAR 40 [Concomitant]
     Indication: RESPIRATORY DISORDER
     Route: 055
  10. VITAMIN B-12 [Concomitant]
     Route: 030

REACTIONS (4)
  - ASTHENIA [None]
  - COLONIC OBSTRUCTION [None]
  - DEHYDRATION [None]
  - DEMENTIA [None]
